FAERS Safety Report 13455204 (Version 56)
Quarter: 2018Q4

REPORT INFORMATION
  Report Type: Spontaneous
  Country: TW (occurrence: TW)
  Receive Date: 20170418
  Receipt Date: 20181018
  Transmission Date: 20190204
  Serious: Yes (Death, Hospitalization, Other)
  Sender: FDA-Public Use
  Company Number: TW-PFIZER INC-2015203488

PATIENT
  Age: 57 Year
  Sex: Male

DRUGS (4)
  1. TORISEL [Suspect]
     Active Substance: TEMSIROLIMUS
     Dosage: 25MG, WEEKLY
     Route: 042
     Dates: start: 20170426, end: 20180225
  2. TORISEL [Suspect]
     Active Substance: TEMSIROLIMUS
     Dosage: 25MG, WEEKLY
     Route: 042
     Dates: end: 20170328
  3. TORISEL [Suspect]
     Active Substance: TEMSIROLIMUS
     Dosage: 25MG, WEEKLY
     Route: 042
     Dates: start: 20180307, end: 20181002
  4. TORISEL [Suspect]
     Active Substance: TEMSIROLIMUS
     Indication: RENAL CELL CARCINOMA
     Dosage: 25MG, WEEKLY
     Route: 042
     Dates: start: 20150610, end: 20151223

REACTIONS (50)
  - Gastroenteritis [Not Recovered/Not Resolved]
  - Influenza A virus test positive [Not Recovered/Not Resolved]
  - Stomatitis [Not Recovered/Not Resolved]
  - Discomfort [Not Recovered/Not Resolved]
  - Asthenia [Not Recovered/Not Resolved]
  - Gastrooesophageal reflux disease [Not Recovered/Not Resolved]
  - Vision blurred [Not Recovered/Not Resolved]
  - Blood creatinine increased [Not Recovered/Not Resolved]
  - Insomnia [Not Recovered/Not Resolved]
  - Ocular hyperaemia [Recovered/Resolved]
  - Cardiac failure acute [Not Recovered/Not Resolved]
  - Diabetic hyperosmolar coma [Not Recovered/Not Resolved]
  - Glossodynia [Not Recovered/Not Resolved]
  - Glycosylated haemoglobin increased [Not Recovered/Not Resolved]
  - Blood alkaline phosphatase increased [Not Recovered/Not Resolved]
  - Oropharyngeal pain [Recovered/Resolved]
  - Ischaemic enteritis [Fatal]
  - Pulmonary oedema [Not Recovered/Not Resolved]
  - Diarrhoea [Not Recovered/Not Resolved]
  - Pneumonia [Not Recovered/Not Resolved]
  - Blood cholesterol increased [Not Recovered/Not Resolved]
  - Hypertriglyceridaemia [Not Recovered/Not Resolved]
  - Angular cheilitis [Not Recovered/Not Resolved]
  - Rash pustular [Not Recovered/Not Resolved]
  - Productive cough [Not Recovered/Not Resolved]
  - Abdominal pain [Not Recovered/Not Resolved]
  - Gingival pain [Not Recovered/Not Resolved]
  - Blood lactate dehydrogenase increased [Not Recovered/Not Resolved]
  - Alanine aminotransferase increased [Not Recovered/Not Resolved]
  - Dry skin [Not Recovered/Not Resolved]
  - Hypertension [Not Recovered/Not Resolved]
  - Periorbital oedema [Recovered/Resolved]
  - Blood urea increased [Not Recovered/Not Resolved]
  - Muscle spasms [Not Recovered/Not Resolved]
  - Liver injury [Fatal]
  - Dyspnoea exertional [Not Recovered/Not Resolved]
  - Pleural effusion [Not Recovered/Not Resolved]
  - Dyspnoea [Not Recovered/Not Resolved]
  - Hiccups [Not Recovered/Not Resolved]
  - Papule [Not Recovered/Not Resolved]
  - Pyrexia [Not Recovered/Not Resolved]
  - Cough [Not Recovered/Not Resolved]
  - Rash [Not Recovered/Not Resolved]
  - Blister [Not Recovered/Not Resolved]
  - Hyperglycaemia [Not Recovered/Not Resolved]
  - Oedema peripheral [Recovered/Resolved]
  - Asthma [Recovered/Resolved]
  - Acute pulmonary oedema [Not Recovered/Not Resolved]
  - Abdominal discomfort [Not Recovered/Not Resolved]
  - Low density lipoprotein increased [Not Recovered/Not Resolved]
